FAERS Safety Report 6931289-2 (Version None)
Quarter: 2010Q3

REPORT INFORMATION
  Report Type: 
  Country: None (occurrence: None)
  Receive Date: 20100816
  Receipt Date: 20100803
  Transmission Date: 20110219
  Serious: Yes (Hospitalization)
  Sender: FDA-Public Use
  Company Number: 2010-2744

PATIENT
  Age: 55 Year
  Sex: Male

DRUGS (1)
  1. APO-GO PFS (APO-GO) (APOMORPHINE HYDROCHLORIDE)(APOMORPHINE HYDROCHLOR [Suspect]
     Indication: PRODUCT USED FOR UNKNOWN INDICATION
     Dosage: (NOT REPORTED,CONTINUOUS 24 HOURS/DAY), SUBCUTANEOUS
     Route: 058
     Dates: start: 20100205

REACTIONS (2)
  - ERYSIPELAS [None]
  - THROMBOSIS [None]
